FAERS Safety Report 8106804-6 (Version None)
Quarter: 2012Q1

REPORT INFORMATION
  Report Type: 
  Country: None (occurrence: None)
  Receive Date: 20120202
  Receipt Date: 20120125
  Transmission Date: 20120608
  Serious: Yes (Other)
  Sender: FDA-Public Use
  Company Number: US-INCYTE CORPORATION-2012IN000091

PATIENT
  Sex: Female

DRUGS (5)
  1. HU-TET [Concomitant]
  2. REVLIMID [Concomitant]
  3. JAKAFI [Suspect]
     Indication: MYELOFIBROSIS
     Dosage: 20 MG, BID
     Route: 048
     Dates: start: 20111201
  4. JAKAFI [Suspect]
     Dosage: 5 MG, BID
     Route: 048
     Dates: end: 20120105
  5. THALIDOMIDE [Concomitant]

REACTIONS (3)
  - CONFUSIONAL STATE [None]
  - PLATELET COUNT DECREASED [None]
  - BLOOD CREATININE INCREASED [None]
